FAERS Safety Report 5423130-4 (Version None)
Quarter: 2007Q3

REPORT INFORMATION
  Report Type: 
  Country: None (occurrence: None)
  Receive Date: 20070821
  Receipt Date: 20070809
  Transmission Date: 20080115
  Serious: No
  Sender: FDA-Public Use
  Company Number: OMPQ-NO-0708S-1100

PATIENT
  Age: 51 Year
  Sex: Female

DRUGS (1)
  1. OMNIPAQUE 140 [Suspect]
     Indication: DRUG USE FOR UNKNOWN INDICATION
     Dosage: SINGLE DOSE
     Dates: start: 20070727, end: 20070727

REACTIONS (3)
  - EYELID OEDEMA [None]
  - HYPOAESTHESIA [None]
  - MUSCULAR WEAKNESS [None]
